FAERS Safety Report 6416530-7 (Version None)
Quarter: 2009Q4

REPORT INFORMATION
  Report Type: 
  Country: None (occurrence: None)
  Receive Date: 20091027
  Receipt Date: 20091019
  Transmission Date: 20100525
  Serious: Yes (Congenital Anomaly, Other)
  Sender: FDA-Public Use
  Company Number: PHEH2009US11511

PATIENT
  Sex: Female
  Weight: 3.36 kg

DRUGS (2)
  1. FEMARA [Suspect]
     Dosage: UNK
     Route: 064
     Dates: start: 20090107, end: 20090406
  2. AYGESTIN [Concomitant]
     Dosage: UNK
     Route: 064
     Dates: start: 20090107, end: 20090406

REACTIONS (2)
  - DRUG EXPOSURE DURING PREGNANCY [None]
  - GENITALIA EXTERNAL AMBIGUOUS [None]
